FAERS Safety Report 18665366 (Version 2)
Quarter: 2020Q4

REPORT INFORMATION
  Report Type: Spontaneous
  Country: GB (occurrence: GB)
  Receive Date: 20201225
  Receipt Date: 20201230
  Transmission Date: 20210114
  Serious: Yes (Death, Hospitalization, Other)
  Sender: FDA-Public Use
  Company Number: GB-MYLANLABS-2020M1104407

PATIENT
  Age: 60 Year
  Sex: Male

DRUGS (2)
  1. CLARITHROMYCIN. [Suspect]
     Active Substance: CLARITHROMYCIN
     Indication: NIGHT SWEATS
     Dosage: UNK
  2. CLARITHROMYCIN. [Suspect]
     Active Substance: CLARITHROMYCIN
     Indication: PERIPHERAL SWELLING
     Dosage: UNK

REACTIONS (19)
  - Malaise [Fatal]
  - Fall [Unknown]
  - Urinary retention [Fatal]
  - Urinary tract infection [Fatal]
  - Constipation [Not Recovered/Not Resolved]
  - Confusional state [Fatal]
  - Peripheral swelling [Unknown]
  - Fluid retention [Not Recovered/Not Resolved]
  - Nausea [Unknown]
  - Somnolence [Unknown]
  - Sepsis [Fatal]
  - Loss of control of legs [Fatal]
  - Oedema [Not Recovered/Not Resolved]
  - Chest discomfort [Fatal]
  - Rash [Unknown]
  - Liver disorder [Fatal]
  - Night sweats [Unknown]
  - Wound [Unknown]
  - Abdominal pain upper [Not Recovered/Not Resolved]

NARRATIVE: CASE EVENT DATE: 20200829
